FAERS Safety Report 7354153-6 (Version None)
Quarter: 2011Q1

REPORT INFORMATION
  Report Type: 
  Country: None (occurrence: None)
  Receive Date: 20110316
  Receipt Date: 20110304
  Transmission Date: 20110831
  Serious: Yes (Other)
  Sender: FDA-Public Use
  Company Number: BR-AMGEN-BRASP2011012902

PATIENT
  Age: 31 Year
  Sex: Female

DRUGS (6)
  1. FOLIC ACID [Concomitant]
     Dosage: UNK
  2. METHOTREXATE [Concomitant]
     Indication: PSORIATIC ARTHROPATHY
     Dosage: UNK
     Dates: end: 20110101
  3. PROFLAM [Concomitant]
     Indication: PSORIATIC ARTHROPATHY
     Dosage: UNK
     Dates: end: 20110101
  4. NAPROXEN [Concomitant]
     Indication: PSORIATIC ARTHROPATHY
     Dosage: UNK
     Dates: end: 20110101
  5. ENBREL [Suspect]
     Indication: PSORIATIC ARTHROPATHY
     Dosage: 1 INJECTION WEEKLY
     Route: 058
     Dates: start: 20110101
  6. PREDNISOLONE [Concomitant]
     Indication: PSORIATIC ARTHROPATHY
     Dosage: 5 MG, 1 TABLET AND A HALF DAILY
     Dates: start: 20110101

REACTIONS (2)
  - DIARRHOEA [None]
  - ABDOMINAL PAIN UPPER [None]
